FAERS Safety Report 11428340 (Version 1)
Quarter: 2015Q3

REPORT INFORMATION
  Report Type: Spontaneous
  Country: US (occurrence: US)
  Receive Date: 20150828
  Receipt Date: 20150828
  Transmission Date: 20151125
  Serious: No
  Sender: FDA-Public Use
  Company Number: US-ROCHE-1222313

PATIENT
  Age: 48 Year
  Sex: Male
  Weight: 84.44 kg

DRUGS (3)
  1. PEGASYS [Suspect]
     Active Substance: PEGINTERFERON ALFA-2A
     Indication: CHRONIC HEPATITIS C
     Route: 058
     Dates: start: 20130426
  2. TELAPREVIR [Suspect]
     Active Substance: TELAPREVIR
     Indication: CHRONIC HEPATITIS C
     Route: 065
     Dates: start: 20130426
  3. COPEGUS [Suspect]
     Active Substance: RIBAVIRIN
     Indication: CHRONIC HEPATITIS C
     Route: 048
     Dates: start: 20130426

REACTIONS (12)
  - Constipation [Unknown]
  - Malaise [Unknown]
  - Headache [Unknown]
  - Painful defaecation [Unknown]
  - Gingival swelling [Unknown]
  - Chills [Unknown]
  - Pain [Unknown]
  - Haemorrhoids [Unknown]
  - Toothache [Unknown]
  - Clumsiness [Unknown]
  - Insomnia [Unknown]
  - Rash macular [Recovered/Resolved]

NARRATIVE: CASE EVENT DATE: 20130427
